FAERS Safety Report 14172665 (Version 1)
Quarter: 2017Q4

REPORT INFORMATION
  Report Type: Spontaneous
  Country: US (occurrence: US)
  Receive Date: 20171108
  Receipt Date: 20171108
  Transmission Date: 20180321
  Serious: Yes (Death)
  Sender: FDA-Public Use
  Company Number: None

PATIENT
  Sex: Male
  Weight: 141.75 kg

DRUGS (12)
  1. VITAMIN D3 [Concomitant]
     Active Substance: CHOLECALCIFEROL
  2. ROBAXIN [Concomitant]
     Active Substance: METHOCARBAMOL
  3. SIMVASTATIN. [Concomitant]
     Active Substance: SIMVASTATIN
  4. CLONOPIN [Concomitant]
     Active Substance: CLONAZEPAM
  5. LATUDA [Suspect]
     Active Substance: LURASIDONE HYDROCHLORIDE
     Indication: SCHIZOAFFECTIVE DISORDER
  6. METFORMIN [Concomitant]
     Active Substance: METFORMIN HYDROCHLORIDE
  7. MEN^S ONE A DAY CENTRUM MULTIPLE VITAMIN [Concomitant]
  8. IMODIUM [Concomitant]
     Active Substance: LOPERAMIDE HYDROCHLORIDE
  9. LOPRESSOR [Concomitant]
     Active Substance: METOPROLOL TARTRATE
  10. NORCO [Concomitant]
     Active Substance: ACETAMINOPHEN\HYDROCODONE BITARTRATE
  11. RESTORIL [Concomitant]
     Active Substance: TEMAZEPAM
  12. BUSPAR [Concomitant]
     Active Substance: BUSPIRONE HYDROCHLORIDE

REACTIONS (1)
  - Arrhythmia [None]

NARRATIVE: CASE EVENT DATE: 20161008
